FAERS Safety Report 8427549-9 (Version None)
Quarter: 2012Q2

REPORT INFORMATION
  Report Type: 
  Country: None (occurrence: None)
  Receive Date: 20120611
  Receipt Date: 20120601
  Transmission Date: 20120825
  Serious: Yes (Other)
  Sender: FDA-Public Use
  Company Number: JP-VERTEX PHARMACEUTICALS INC.-AE-2012-008473

PATIENT
  Age: 50 Year
  Sex: Male

DRUGS (9)
  1. RIBAVIRIN [Concomitant]
     Indication: HEPATITIS C
     Route: 048
     Dates: start: 20120220, end: 20120416
  2. FAMOTIDINE [Concomitant]
     Route: 048
  3. MARZULENE-S [Concomitant]
     Route: 048
     Dates: start: 20120222
  4. TELAVIC (TELAPREVIR) [Suspect]
     Indication: HEPATITIS C
     Route: 048
     Dates: start: 20120220, end: 20120507
  5. MUCOSTA [Concomitant]
     Route: 048
     Dates: start: 20120222
  6. TELAVIC (TELAPREVIR) [Suspect]
     Route: 048
     Dates: start: 20120508, end: 20120515
  7. RIBAVIRIN [Concomitant]
     Route: 048
     Dates: start: 20120417
  8. PEGINTERFERON ALFA-2A [Concomitant]
     Indication: HEPATITIS C
     Route: 051
     Dates: start: 20120220, end: 20120327
  9. PEGINTERFERON ALFA-2A [Concomitant]
     Route: 051
     Dates: start: 20120403

REACTIONS (3)
  - HAEMOGLOBIN DECREASED [None]
  - RETINOPATHY [None]
  - WHITE BLOOD CELL COUNT DECREASED [None]
